FAERS Safety Report 16445366 (Version 1)
Quarter: 2019Q2

REPORT INFORMATION
  Report Type: Spontaneous
  Country: US (occurrence: US)
  Receive Date: 20190508
  Receipt Date: 20190508
  Transmission Date: 20190711
  Serious: Yes (Life-Threatening, Hospitalization)
  Sender: FDA-Public Use
  Company Number: None

PATIENT
  Sex: Female
  Weight: 52.16 kg

DRUGS (2)
  1. PLENVU [Suspect]
     Active Substance: ASCORBIC ACID\POLYETHYLENE GLYCOL 3350\POTASSIUM CHLORIDE\SODIUM ASCORBATE\SODIUM CHLORIDE\SODIUM SULFATE
     Indication: COLONOSCOPY
     Dosage: IN WATER SOLUTION 16 OZ ONCE ORALLY
     Route: 048
     Dates: start: 20190423
  2. PLENVU [Suspect]
     Active Substance: ASCORBIC ACID\POLYETHYLENE GLYCOL 3350\POTASSIUM CHLORIDE\SODIUM ASCORBATE\SODIUM CHLORIDE\SODIUM SULFATE
     Indication: COLONOSCOPY
     Dosage: IN WATER SOLUTION 16 OZ ONCE ORALLY?          ?
     Route: 048
     Dates: start: 20190422

REACTIONS (6)
  - Nausea [None]
  - Vomiting [None]
  - Loss of consciousness [None]
  - Abdominal discomfort [None]
  - Coma [None]
  - Diarrhoea [None]
